FAERS Safety Report 4366118-7 (Version None)
Quarter: 2004Q2

REPORT INFORMATION
  Report Type: 
  Country: None (occurrence: None)
  Receive Date: 20040524
  Receipt Date: 20040518
  Transmission Date: 20050107
  Serious: Yes (Hospitalization)
  Sender: FDA-Public Use
  Company Number: 2004-02-0297

PATIENT
  Age: 62 Year
  Sex: Male
  Weight: 70 kg

DRUGS (3)
  1. CELESTAMINE TAB [Suspect]
     Indication: RHINITIS ALLERGIC
     Dosage: 2 TABLETS ORAL
     Route: 048
     Dates: start: 20030410, end: 20031031
  2. CLARITIN [Suspect]
     Indication: RHINITIS ALLERGIC
     Dosage: 10 MG ORAL
     Route: 048
     Dates: start: 20030410, end: 20031031
  3. DEPAS [Concomitant]

REACTIONS (2)
  - CONDITION AGGRAVATED [None]
  - SUDDEN HEARING LOSS [None]
